FAERS Safety Report 5832403-2 (Version None)
Quarter: 2008Q3

REPORT INFORMATION
  Report Type: 
  Country: None (occurrence: None)
  Receive Date: 20080731
  Receipt Date: 20080731
  Transmission Date: 20090109
  Serious: Yes (Other)
  Sender: FDA-Public Use
  Company Number: None

PATIENT
  Age: 45 Year
  Sex: Female
  Weight: 58.0604 kg

DRUGS (1)
  1. LYRICA [Suspect]
     Indication: NEURALGIA
     Dosage: 100MG CAP AT BEDTIME PO (DURATION: 4 1/2 MONTHS)
     Route: 048
     Dates: start: 20061017, end: 20080307

REACTIONS (3)
  - BLINDNESS [None]
  - OEDEMA PERIPHERAL [None]
  - VISION BLURRED [None]
